FAERS Safety Report 24113758 (Version 1)
Quarter: 2024Q3

REPORT INFORMATION
  Report Type: Spontaneous
  Country: US (occurrence: US)
  Receive Date: 20240720
  Receipt Date: 20240720
  Transmission Date: 20241016
  Serious: No
  Sender: SANDOZ
  Company Number: US-SANDOZ-SDZ2024US065986

PATIENT
  Sex: Female

DRUGS (5)
  1. COSYNTROPIN [Suspect]
     Active Substance: COSYNTROPIN
     Indication: Product used for unknown indication
     Dosage: UNK
     Route: 065
  2. MAGNESIUM [Concomitant]
     Active Substance: MAGNESIUM
     Indication: Product used for unknown indication
     Dosage: UNK
     Route: 065
  3. POTASSIUM [Concomitant]
     Active Substance: POTASSIUM
     Indication: Product used for unknown indication
     Dosage: UNK
     Route: 065
  4. VITAMIN D2 [Concomitant]
     Active Substance: ERGOCALCIFEROL
     Indication: Product used for unknown indication
     Dosage: UNK
     Route: 065
  5. VITAMIN D3 [Concomitant]
     Active Substance: CHOLECALCIFEROL
     Indication: Product used for unknown indication
     Dosage: UNK
     Route: 065

REACTIONS (14)
  - Hypoaesthesia [Unknown]
  - Productive cough [Unknown]
  - Speech disorder [Unknown]
  - Cortisol abnormal [Unknown]
  - Blood pressure decreased [Unknown]
  - Muscle tightness [Unknown]
  - Dyskinesia [Unknown]
  - Musculoskeletal stiffness [Unknown]
  - Feeling abnormal [Unknown]
  - Hunger [Unknown]
  - Pain [Unknown]
  - Anxiety [Unknown]
  - Dysphonia [Unknown]
  - Dizziness [Unknown]
